FAERS Safety Report 25247731 (Version 1)
Quarter: 2025Q2

REPORT INFORMATION
  Report Type: Spontaneous
  Country: US (occurrence: US)
  Receive Date: 20250428
  Receipt Date: 20250428
  Transmission Date: 20250717
  Serious: Yes (Other)
  Sender: AMGEN
  Company Number: US-AMGEN-USASP2025080038

PATIENT

DRUGS (2)
  1. RITUXIMAB [Suspect]
     Active Substance: RITUXIMAB
     Indication: Multiple sclerosis
     Route: 065
  2. OFATUMUMAB [Concomitant]
     Active Substance: OFATUMUMAB
     Indication: Relapsing multiple sclerosis

REACTIONS (29)
  - Multiple sclerosis [Unknown]
  - Multiple sclerosis relapse [Unknown]
  - Urinary retention [Unknown]
  - JC virus infection [Unknown]
  - Angioedema [Unknown]
  - Drug intolerance [Unknown]
  - Adverse reaction [Unknown]
  - Therapeutic response shortened [Unknown]
  - Influenza like illness [Unknown]
  - Gastrointestinal disorder [Unknown]
  - Palpitations [Unknown]
  - Mood altered [Unknown]
  - Off label use [Unknown]
  - Injection related reaction [Unknown]
  - Injection site reaction [Unknown]
  - Infusion related reaction [Unknown]
  - Headache [Unknown]
  - Fatigue [Unknown]
  - Chills [Unknown]
  - Myalgia [Unknown]
  - Pyrexia [Unknown]
  - Rhinorrhoea [Unknown]
  - Nausea [Unknown]
  - Abdominal pain [Unknown]
  - Flushing [Unknown]
  - Pruritus [Unknown]
  - Tremor [Unknown]
  - Muscle spasms [Unknown]
  - Dizziness [Unknown]
